FAERS Safety Report 9957345 (Version 1)
Quarter: 2014Q1

REPORT INFORMATION
  Report Type: Report from Study
  Country: US (occurrence: US)
  Receive Date: 20140304
  Receipt Date: 20140304
  Transmission Date: 20141002
  Serious: No
  Sender: FDA-Public Use
  Company Number: US-ABBVIE-13P-163-1096896-00

PATIENT
  Age: 59 Year
  Sex: Male

DRUGS (4)
  1. HUMIRA [Suspect]
     Indication: COLITIS ULCERATIVE
     Dates: start: 20121206
  2. TYPE 2 DIABETES MEDICATION [Concomitant]
     Indication: TYPE 2 DIABETES MELLITUS
  3. METHOTREXATE [Concomitant]
     Indication: COLITIS ULCERATIVE
  4. HIGH BLOOD PRESSURE MEDICATION [Concomitant]
     Indication: HYPERTENSION

REACTIONS (2)
  - Cough [Not Recovered/Not Resolved]
  - Nasopharyngitis [Not Recovered/Not Resolved]
